FAERS Safety Report 8689389 (Version 2)
Quarter: 2013Q1

REPORT INFORMATION
  Report Type: Spontaneous
  Country: US (occurrence: US)
  Receive Date: 20120727
  Receipt Date: 20130131
  Transmission Date: 20140127
  Serious: Yes (Other)
  Sender: FDA-Public Use
  Company Number: US-ASTRAZENECA-2012SE01569

PATIENT
  Age: 52 Year
  Sex: Male
  Weight: 120.7 kg

DRUGS (25)
  1. OMEPRAZOLE [Suspect]
     Indication: GASTROOESOPHAGEAL REFLUX DISEASE
     Route: 048
  2. SEROQUEL [Suspect]
     Indication: BIPOLAR DISORDER
     Route: 048
  3. SEROQUEL [Suspect]
     Indication: BIPOLAR DISORDER
     Dosage: DAILY
     Route: 048
  4. SEROQUEL [Suspect]
     Indication: BIPOLAR DISORDER
     Route: 048
  5. SEROQUEL [Suspect]
     Indication: BIPOLAR DISORDER
     Route: 048
  6. SEROQUEL [Suspect]
     Indication: BIPOLAR DISORDER
     Route: 048
     Dates: start: 2011
  7. SEROQUEL [Suspect]
     Indication: BIPOLAR DISORDER
     Route: 048
     Dates: start: 2011
  8. HYDROXAZINE [Concomitant]
  9. HYDROCHLOROTHIAZIDE [Concomitant]
  10. LITHIUM [Concomitant]
     Indication: BIPOLAR DISORDER
     Route: 048
     Dates: start: 1991, end: 201211
  11. KLONOPIN [Concomitant]
     Indication: ANXIETY
     Route: 048
  12. KLONOPIN [Concomitant]
     Indication: ANXIETY
     Route: 048
  13. ENALAPRIL [Concomitant]
     Indication: HYPERTENSION
     Route: 048
  14. SIMVASTATIN [Concomitant]
     Indication: BLOOD CHOLESTEROL INCREASED
  15. ASPIRIN [Concomitant]
     Indication: PROPHYLAXIS
     Route: 048
  16. VELTRAX [Concomitant]
  17. DEXILANT [Concomitant]
     Indication: GASTROOESOPHAGEAL REFLUX DISEASE
  18. LAMOTRIGINE [Concomitant]
     Indication: BIPOLAR DISORDER
     Route: 048
  19. POLYETHYLENE [Concomitant]
     Indication: CONSTIPATION
     Dosage: BID
     Route: 048
  20. MULTIVITAMIN [Concomitant]
     Dosage: DAILY
     Route: 048
  21. KETOCONAZOLE [Concomitant]
     Indication: ECZEMA
     Dosage: PRN
     Route: 061
     Dates: start: 2010
  22. CLOTRIMAZOLE [Concomitant]
     Indication: RASH
     Dosage: BID
     Route: 061
     Dates: start: 201212, end: 201301
  23. GENTAMICIN SULFATE [Concomitant]
     Indication: RASH
     Dosage: BID
     Route: 061
     Dates: start: 201301
  24. FLUTICASONE [Concomitant]
     Indication: MULTIPLE ALLERGIES
     Route: 045
     Dates: start: 201205
  25. VALACYCLOVIR HCL [Concomitant]
     Indication: HERPES SIMPLEX
     Route: 048
     Dates: start: 1997

REACTIONS (24)
  - Renal failure chronic [Unknown]
  - Coeliac disease [Unknown]
  - Bone pain [Unknown]
  - Chest discomfort [Unknown]
  - Oesophagitis [Unknown]
  - Gastrooesophageal reflux disease [Unknown]
  - Blood pressure abnormal [Unknown]
  - Intervertebral disc protrusion [Unknown]
  - Eczema [Unknown]
  - Rash [Unknown]
  - Mania [Unknown]
  - Withdrawal syndrome [Unknown]
  - Back pain [Unknown]
  - Asthenia [Unknown]
  - Feeling jittery [Unknown]
  - Memory impairment [Unknown]
  - Sneezing [Unknown]
  - Blood pressure fluctuation [Unknown]
  - Headache [Unknown]
  - Chest pain [Unknown]
  - Gastroenteritis [Unknown]
  - Genital rash [Unknown]
  - Weight decreased [Unknown]
  - Constipation [Unknown]
